FAERS Safety Report 5603191-X (Version None)
Quarter: 2008Q1

REPORT INFORMATION
  Report Type: 
  Country: None (occurrence: None)
  Receive Date: 20080123
  Receipt Date: 20080109
  Transmission Date: 20080703
  Serious: Yes (Hospitalization)
  Sender: FDA-Public Use
  Company Number: 67218

PATIENT
  Age: 50 Year
  Sex: Male

DRUGS (1)
  1. NITETIME FREE ORIGINAL LIQUID/PERRIGO [Suspect]
     Indication: COUGH
     Dosage: UNKNOWN DOSE QD/ORAL
     Route: 048
     Dates: start: 20080103, end: 20080104

REACTIONS (4)
  - DIZZINESS [None]
  - GASTRIC DISORDER [None]
  - HAEMATEMESIS [None]
  - PHARYNGEAL DISORDER [None]
